FAERS Safety Report 5656978-1 (Version None)
Quarter: 2008Q1

REPORT INFORMATION
  Report Type: 
  Country: None (occurrence: None)
  Receive Date: 20080310
  Receipt Date: 20080306
  Transmission Date: 20080703
  Serious: Yes (Other)
  Sender: FDA-Public Use
  Company Number: B0510124A

PATIENT
  Age: 12 Year
  Sex: Male

DRUGS (5)
  1. RELENZA [Suspect]
     Indication: INFLUENZA
     Dosage: 10MG TWICE PER DAY
     Route: 055
     Dates: start: 20080221, end: 20080225
  2. POLARAMINE [Concomitant]
     Indication: INFLUENZA
     Dosage: 6MG PER DAY
     Route: 048
     Dates: start: 20080221
  3. MEDICON [Concomitant]
     Indication: INFLUENZA
     Dosage: 45MG PER DAY
     Route: 048
     Dates: start: 20080221
  4. KLARICID [Concomitant]
     Indication: INFLUENZA
     Dosage: 100MG PER DAY
     Route: 048
     Dates: start: 20080221
  5. CALONAL [Concomitant]
     Indication: INFLUENZA
     Route: 048
     Dates: start: 20080221

REACTIONS (3)
  - ABNORMAL BEHAVIOUR [None]
  - FEELING ABNORMAL [None]
  - RESTLESSNESS [None]
